FAERS Safety Report 9362736 (Version 1)
Quarter: 2013Q2

REPORT INFORMATION
  Report Type: Report from Study
  Country: DE (occurrence: DE)
  Receive Date: 20130622
  Receipt Date: 20130622
  Transmission Date: 20140414
  Serious: Yes (Hospitalization, Other)
  Sender: FDA-Public Use
  Company Number: DE-ASTRAZENECA-2013SE46961

PATIENT
  Age: 18 Week
  Sex: Male
  Weight: 3.4 kg

DRUGS (7)
  1. PALIVIZUMAB [Suspect]
     Indication: ANTIVIRAL PROPHYLAXIS
     Route: 030
     Dates: start: 20121008, end: 20121008
  2. PALIVIZUMAB [Suspect]
     Indication: ANTIVIRAL PROPHYLAXIS
     Route: 030
     Dates: start: 20121109, end: 20121109
  3. PALIVIZUMAB [Suspect]
     Indication: ANTIVIRAL PROPHYLAXIS
     Route: 030
     Dates: start: 20121207, end: 20121207
  4. PALIVIZUMAB [Suspect]
     Indication: ANTIVIRAL PROPHYLAXIS
     Route: 030
     Dates: start: 20130116, end: 20130116
  5. PALIVIZUMAB [Suspect]
     Indication: ANTIVIRAL PROPHYLAXIS
     Route: 030
     Dates: start: 20130213, end: 20130213
  6. PALIVIZUMAB [Suspect]
     Indication: ANTIVIRAL PROPHYLAXIS
     Route: 030
     Dates: start: 20130312, end: 20130312
  7. PALIVIZUMAB [Suspect]
     Indication: ANTIVIRAL PROPHYLAXIS
     Route: 030
     Dates: start: 20130409, end: 20130409

REACTIONS (1)
  - Malaise [Recovered/Resolved]
